FAERS Safety Report 8320583-9 (Version None)
Quarter: 2012Q2

REPORT INFORMATION
  Report Type: 
  Country: None (occurrence: None)
  Receive Date: 20120430
  Receipt Date: 20120424
  Transmission Date: 20120825
  Serious: Yes (Disabling)
  Sender: FDA-Public Use
  Company Number: US-PFIZER INC-2012058900

PATIENT
  Sex: Female
  Weight: 60.32 kg

DRUGS (14)
  1. MORPHINE [Concomitant]
     Dosage: UNK
  2. LISINOPRIL [Concomitant]
     Indication: HYPERTENSION
     Dosage: UNK
  3. CHLORPHENIRAMINE / DEXTROMETHORPHAN / PHENYLEPHRINE [Concomitant]
     Dosage: UNK
  4. XANAX [Concomitant]
     Dosage: 1 MG
  5. LYRICA [Suspect]
     Indication: PAIN
     Dosage: 50 MG, 2X/DAY
     Route: 048
     Dates: start: 20120222, end: 20120101
  6. HYDROCODONE [Concomitant]
     Dosage: UNK
  7. NEXIUM [Concomitant]
     Dosage: UNK
  8. OXYBUTYNIN [Concomitant]
     Indication: BLADDER DISORDER
     Dosage: UNK
  9. CALCIUM [Concomitant]
     Dosage: 600 MG
  10. MULTI-VITAMINS [Concomitant]
     Dosage: UNK
  11. BIAXIN [Concomitant]
     Dosage: UNK
  12. VIROPTIC [Concomitant]
     Dosage: UNK
  13. PROZAC [Concomitant]
     Dosage: UNK
  14. CODICLEAR [Concomitant]
     Dosage: UNK

REACTIONS (1)
  - BACK DISORDER [None]
